FAERS Safety Report 14654402 (Version 2)
Quarter: 2018Q2

REPORT INFORMATION
  Report Type: Report from Study
  Country: CA (occurrence: CA)
  Receive Date: 20180319
  Receipt Date: 20180405
  Transmission Date: 20180711
  Serious: Yes (Other)
  Sender: FDA-Public Use
  Company Number: CA-BRISTOL-MYERS SQUIBB COMPANY-BMS-2017-093389

PATIENT
  Age: 90 Year
  Sex: Female

DRUGS (1)
  1. ABATACEPT [Suspect]
     Active Substance: ABATACEPT
     Indication: RHEUMATOID ARTHRITIS
     Dosage: 500 MG, Q4WK
     Route: 042
     Dates: start: 20170405

REACTIONS (5)
  - Eye infection [Unknown]
  - Ulcerative keratitis [Unknown]
  - Ocular hyperaemia [Recovered/Resolved with Sequelae]
  - Eye disorder [Unknown]
  - Fall [Unknown]

NARRATIVE: CASE EVENT DATE: 2017
